FAERS Safety Report 18560662 (Version 4)
Quarter: 2021Q1

REPORT INFORMATION
  Report Type: Spontaneous
  Country: AT (occurrence: AT)
  Receive Date: 20201130
  Receipt Date: 20210222
  Transmission Date: 20210419
  Serious: Yes (Other)
  Sender: FDA-Public Use
  Company Number: AT-BAYER-2020-227126

PATIENT
  Sex: Female

DRUGS (2)
  1. VITRAKVI [Suspect]
     Active Substance: LAROTRECTINIB
     Indication: BREAST CANCER
     Dosage: 5 ML, BID
     Dates: start: 20200911, end: 20201004
  2. VITRAKVI [Suspect]
     Active Substance: LAROTRECTINIB
     Indication: BREAST CANCER
     Dosage: 4 ML, BID
     Dates: start: 20201005, end: 20201123

REACTIONS (6)
  - Metastases to liver [None]
  - Dizziness [Recovered/Resolved]
  - Tumour marker increased [None]
  - Dizziness [Recovered/Resolved]
  - Breast cancer female [None]
  - Dizziness [None]

NARRATIVE: CASE EVENT DATE: 20200922
